FAERS Safety Report 5270388-0 (Version None)
Quarter: 2007Q1

REPORT INFORMATION
  Report Type: 
  Country: None (occurrence: None)
  Receive Date: 20070320
  Receipt Date: 20060801
  Transmission Date: 20070707
  Serious: Yes (Hospitalization)
  Sender: FDA-Public Use
  Company Number: TH-BOEHRINGER INGELHEIM GMBH, GERMANY-2006-UK-03383UK

PATIENT
  Sex: Female
  Weight: 58 kg

DRUGS (4)
  1. AGGRENOX [Suspect]
     Indication: CEREBROVASCULAR ACCIDENT PROPHYLAXIS
     Route: 048
     Dates: start: 20060222, end: 20060312
  2. MICARDIS [Suspect]
     Indication: CEREBROVASCULAR ACCIDENT PROPHYLAXIS
     Route: 048
     Dates: start: 20060222, end: 20060308
  3. CLOPIDOGREL [Suspect]
     Indication: CEREBROVASCULAR ACCIDENT PROPHYLAXIS
     Route: 048
     Dates: start: 20060222, end: 20060312
  4. SIMVASTATIN [Suspect]
     Indication: DYSLIPIDAEMIA
     Route: 048
     Dates: start: 20060222, end: 20060308

REACTIONS (1)
  - MYOSITIS [None]
